FAERS Safety Report 19053032 (Version 2)
Quarter: 2021Q2

REPORT INFORMATION
  Report Type: Spontaneous
  Country: US (occurrence: US)
  Receive Date: 20210325
  Receipt Date: 20210426
  Transmission Date: 20210717
  Serious: No
  Sender: FDA-Public Use
  Company Number: US-ELI_LILLY_AND_COMPANY-US202103006327

PATIENT
  Age: 21 Year
  Sex: Female

DRUGS (14)
  1. BAMLANIVIMAB 700MG [Suspect]
     Active Substance: BAMLANIVIMAB
     Indication: COVID-19
     Dosage: 700 MG, SINGLE
     Route: 065
     Dates: start: 20210309, end: 20210309
  2. MONTELUKAST [Concomitant]
     Active Substance: MONTELUKAST SODIUM
  3. METHYL FOLATE [Concomitant]
     Active Substance: LEVOMEFOLATE CALCIUM
  4. BENZYL ALCOHOL [Concomitant]
     Active Substance: BENZYL ALCOHOL
  5. VITAMINS NOS [Concomitant]
     Active Substance: VITAMINS
  6. ALBUTEROL HFA [Concomitant]
     Active Substance: ALBUTEROL SULFATE
  7. ZOLPIDEM [Concomitant]
     Active Substance: ZOLPIDEM TARTRATE
  8. BUSPIRONE [Concomitant]
     Active Substance: BUSPIRONE HYDROCHLORIDE
  9. MELOXICAM. [Concomitant]
     Active Substance: MELOXICAM
  10. LORAZEPAM. [Concomitant]
     Active Substance: LORAZEPAM
  11. LISDEXAMFETAMINE [Concomitant]
     Active Substance: LISDEXAMFETAMINE
  12. SERTRALINE [Concomitant]
     Active Substance: SERTRALINE HYDROCHLORIDE
  13. HYDROCODONE/ACETAMINOPHEN [Concomitant]
     Active Substance: ACETAMINOPHEN\HYDROCODONE
  14. LACTOSE [Concomitant]
     Active Substance: LACTOSE

REACTIONS (1)
  - Pain [Recovered/Resolved]

NARRATIVE: CASE EVENT DATE: 20210309
